FAERS Safety Report 9241393 (Version 1)
Quarter: 2013Q1

REPORT INFORMATION
  Report Type: Spontaneous
  Country: US (occurrence: None)
  Receive Date: 20121114
  Receipt Date: 20121114
  Transmission Date: 20140127
  Serious: Yes (Life-Threatening, Hospitalization)
  Sender: FDA-Public Use
  Company Number: 2012-003358

PATIENT
  Age: 46 Year
  Sex: 0
  Weight: 68.9 kg

DRUGS (4)
  1. LO LOESTRIN FE [Suspect]
     Indication: CONTRACEPTION
     Route: 048
     Dates: start: 20111129, end: 20120712
  2. LO LOESTRIN FE [Suspect]
     Indication: ANAEMIA
     Route: 048
     Dates: start: 20111129, end: 20120712
  3. LO LOESTRIN FE [Suspect]
     Indication: UTERINE LEIOMYOMA
     Route: 048
     Dates: start: 20111129, end: 20120712
  4. BENICAR HCT (HYDROCHLOROTHIAZIDE, OLMESARTAN MEDOXOMIL), 40/12.5MG [Concomitant]

REACTIONS (1)
  - Pulmonary embolism [None]
